FAERS Safety Report 5564916-5 (Version None)
Quarter: 2007Q4

REPORT INFORMATION
  Report Type: 
  Country: None (occurrence: None)
  Receive Date: 20071218
  Receipt Date: 20071211
  Transmission Date: 20080405
  Serious: Yes (Hospitalization)
  Sender: FDA-Public Use
  Company Number: A0676434A

PATIENT
  Age: 15 Year
  Sex: Female

DRUGS (4)
  1. PAXIL [Suspect]
     Indication: ANXIETY
     Dosage: 20MG AT NIGHT
     Route: 048
     Dates: start: 20021114, end: 20030601
  2. PAXIL CR [Suspect]
     Indication: ANXIETY
     Dosage: 25MG AT NIGHT
     Route: 048
     Dates: start: 20030601
  3. PAROXETINE HCL [Suspect]
     Indication: DEPRESSION
     Dosage: 20MG UNKNOWN
     Route: 048
  4. PAXIL [Suspect]
     Route: 048
     Dates: start: 20030615, end: 20030615

REACTIONS (17)
  - ANGER [None]
  - ANXIETY [None]
  - ARRHYTHMIA [None]
  - ASTHENIA [None]
  - ATRIOVENTRICULAR BLOCK [None]
  - CONDUCTION DISORDER [None]
  - DEPRESSION [None]
  - EMOTIONAL DISORDER [None]
  - FEELING OF DESPAIR [None]
  - FEELINGS OF WORTHLESSNESS [None]
  - INSOMNIA [None]
  - INTENTIONAL OVERDOSE [None]
  - POISONING [None]
  - SINUS BRADYCARDIA [None]
  - SOMNOLENCE [None]
  - SUICIDAL IDEATION [None]
  - SUICIDE ATTEMPT [None]
